FAERS Safety Report 6636620-3 (Version None)
Quarter: 2010Q1

REPORT INFORMATION
  Report Type: 
  Country: None (occurrence: None)
  Receive Date: 20100316
  Receipt Date: 20100305
  Transmission Date: 20100710
  Serious: Yes (Congenital Anomaly)
  Sender: FDA-Public Use
  Company Number: GB-MERCK-0811USA02476B1

PATIENT
  Sex: Male
  Weight: 4 kg

DRUGS (4)
  1. PRINIVIL [Suspect]
     Indication: HYPERTENSION
     Route: 064
  2. METHYLDOPA [Concomitant]
     Route: 065
  3. THYROXIN [Concomitant]
     Indication: HYPOTHYROIDISM
     Route: 064
  4. BENDROFLUMETHIAZIDE [Suspect]
     Indication: HYPERTENSION
     Route: 064

REACTIONS (8)
  - BLOOD CREATININE INCREASED [None]
  - DRUG EXPOSURE DURING PREGNANCY [None]
  - FEEDING DISORDER OF INFANCY OR EARLY CHILDHOOD [None]
  - GROWTH RETARDATION [None]
  - NEONATAL RESPIRATORY DISTRESS SYNDROME [None]
  - NEPHROLITHIASIS [None]
  - PREMATURE BABY [None]
  - URINE OXALATE INCREASED [None]
